FAERS Safety Report 13625579 (Version 3)
Quarter: 2018Q1

REPORT INFORMATION
  Report Type: Report from Study
  Country: DE (occurrence: DE)
  Receive Date: 20170607
  Receipt Date: 20180208
  Transmission Date: 20180508
  Serious: Yes (Hospitalization)
  Sender: FDA-Public Use
  Company Number: DE-SA-2017SA032754

PATIENT
  Age: 29 Year
  Sex: Female

DRUGS (3)
  1. KEPPRA [Concomitant]
     Active Substance: LEVETIRACETAM
     Indication: EPILEPSY
     Route: 048
  2. LEMTRADA [Suspect]
     Active Substance: ALEMTUZUMAB
     Indication: MULTIPLE SCLEROSIS
     Route: 041
     Dates: start: 20170213, end: 20170217
  3. LAMOTRIGINE. [Concomitant]
     Active Substance: LAMOTRIGINE
     Indication: EPILEPSY
     Route: 048

REACTIONS (16)
  - Seizure [Recovered/Resolved]
  - Limb discomfort [Unknown]
  - Dysphagia [Unknown]
  - Palpitations [Recovered/Resolved]
  - Rash generalised [Recovered/Resolved]
  - Asthenia [Unknown]
  - Condition aggravated [Unknown]
  - Emotional disorder [Recovering/Resolving]
  - Paraesthesia [Unknown]
  - Neutropenia [Recovered/Resolved]
  - Contusion [Unknown]
  - Dyspnoea [Recovered/Resolved]
  - Mobility decreased [Unknown]
  - Thyroid disorder [Unknown]
  - Fatigue [Unknown]
  - Leukopenia [Recovering/Resolving]

NARRATIVE: CASE EVENT DATE: 2017
